FAERS Safety Report 9678797 (Version 2)
Quarter: 2014Q1

REPORT INFORMATION
  Report Type: Spontaneous
  Country: US (occurrence: US)
  Receive Date: 20131108
  Receipt Date: 20140116
  Transmission Date: 20141002
  Serious: Yes (Other)
  Sender: FDA-Public Use
  Company Number: US-GLAXOSMITHKLINE-A1048240A

PATIENT
  Age: 61 Year
  Sex: Female

DRUGS (9)
  1. FLOVENT [Suspect]
     Indication: ASTHMA
     Dosage: 1PUFF TWICE PER DAY
     Route: 055
     Dates: start: 201307
  2. ALLEGRA [Concomitant]
  3. LISINOPRIL [Concomitant]
  4. AMLODIPINE BESYLATE [Concomitant]
  5. CIMETIDINE [Concomitant]
  6. FOSAMAX [Concomitant]
  7. GUAIFENESIN [Concomitant]
  8. BABY ASPIRIN [Concomitant]
  9. QVAR [Concomitant]

REACTIONS (5)
  - Macular degeneration [Recovering/Resolving]
  - Dyspnoea [Recovering/Resolving]
  - Increased upper airway secretion [Recovering/Resolving]
  - Product quality issue [Unknown]
  - Asthma [Recovering/Resolving]
